FAERS Safety Report 8555697-1 (Version None)
Quarter: 2012Q3

REPORT INFORMATION
  Report Type: 
  Country: None (occurrence: None)
  Receive Date: 20120801
  Receipt Date: 20120723
  Transmission Date: 20120928
  Serious: No
  Sender: FDA-Public Use
  Company Number: US-009507513-1207USA009936

PATIENT

DRUGS (9)
  1. ZOCOR [Suspect]
     Route: 048
  2. VIOXX [Suspect]
  3. DOXYCYCLINE HCL [Suspect]
  4. DEMEROL [Suspect]
  5. CIPROFLAXACIN [Suspect]
  6. LIPITOR [Suspect]
  7. NITROFURANTOIN [Suspect]
  8. CLARITHROMYCIN [Suspect]
  9. LEVAQUIN [Suspect]

REACTIONS (2)
  - DRUG INTOLERANCE [None]
  - PARAESTHESIA [None]
